FAERS Safety Report 8561268-3 (Version None)
Quarter: 2012Q3

REPORT INFORMATION
  Report Type: 
  Country: None (occurrence: None)
  Receive Date: 20120802
  Receipt Date: 20120725
  Transmission Date: 20120928
  Serious: No
  Sender: FDA-Public Use
  Company Number: US-B.I. PHARMACEUTICALS,INC./RIDGEFIELD-2012-BP-16572BP

PATIENT
  Age: 57 Year
  Sex: Female

DRUGS (1)
  1. TRADJENTA [Suspect]
     Indication: DIABETES MELLITUS
     Dosage: 5 MG
     Route: 048

REACTIONS (4)
  - HEART RATE INCREASED [None]
  - INSOMNIA [None]
  - RESPIRATORY RATE INCREASED [None]
  - PARAESTHESIA [None]
